FAERS Safety Report 8256780-0 (Version None)
Quarter: 2012Q2

REPORT INFORMATION
  Report Type: 
  Country: None (occurrence: None)
  Receive Date: 20120403
  Receipt Date: 20120326
  Transmission Date: 20120825
  Serious: Yes (Hospitalization)
  Sender: FDA-Public Use
  Company Number: FR-VERTEX PHARMACEUTICALS INC.-AE-2011-000670

PATIENT
  Sex: Female
  Weight: 53 kg

DRUGS (8)
  1. LORAZEPAM [Concomitant]
     Indication: INSOMNIA
  2. PEGASYS [Concomitant]
     Indication: HEPATITIS C
     Route: 058
     Dates: start: 20110513, end: 20110624
  3. LEVOTHYROXINE SODIUM [Concomitant]
     Indication: HYPOTHYROIDISM
     Dates: start: 19830101
  4. HAVLANE [Concomitant]
     Indication: ANXIETY
  5. VX-950 [Suspect]
     Indication: HEPATITIS C
     Route: 048
     Dates: start: 20110616, end: 20110624
  6. NEUPOGEN [Concomitant]
     Indication: PANCYTOPENIA
     Route: 058
     Dates: start: 20110607, end: 20110624
  7. COPEGUS [Concomitant]
     Indication: HEPATITIS C
     Route: 048
     Dates: start: 20110513, end: 20110624
  8. ACETAMINOPHEN [Concomitant]
     Indication: INFLUENZA
     Dates: start: 20110513, end: 20110624

REACTIONS (1)
  - RASH [None]
